FAERS Safety Report 23950019 (Version 2)
Quarter: 2024Q3

REPORT INFORMATION
  Report Type: Spontaneous
  Country: JP (occurrence: JP)
  Receive Date: 20240607
  Receipt Date: 20240821
  Transmission Date: 20241016
  Serious: Yes (Death, Other)
  Sender: ROCHE
  Company Number: JP-CHUGAI-2024018568AA

PATIENT
  Age: 7 Decade
  Weight: 62 kg

DRUGS (10)
  1. AVASTIN [Suspect]
     Active Substance: BEVACIZUMAB
     Indication: Hepatocellular carcinoma
     Dosage: 15 MILLIGRAM/KILOGRAM, ONCE/3WEEKS
     Route: 065
     Dates: start: 20240305, end: 20240423
  2. TECENTRIQ [Suspect]
     Active Substance: ATEZOLIZUMAB
     Indication: Hepatocellular carcinoma
     Dosage: 1500 MILLIGRAM, ONCE/3WEEKS
     Route: 065
     Dates: start: 20240305, end: 20240423
  3. ASPIRIN [Concomitant]
     Active Substance: ASPIRIN
  4. CANDESARTAN [Concomitant]
     Active Substance: CANDESARTAN
  5. VONOPRAZAN FUMARATE [Concomitant]
     Active Substance: VONOPRAZAN FUMARATE
  6. OXYCODONE [Concomitant]
     Active Substance: OXYCODONE
  7. REPAGLINIDE [Concomitant]
     Active Substance: REPAGLINIDE
  8. AMARYL [Concomitant]
     Active Substance: GLIMEPIRIDE
  9. JARDIANCE [Concomitant]
     Active Substance: EMPAGLIFLOZIN
  10. VOGLIBOSE [Concomitant]
     Active Substance: VOGLIBOSE

REACTIONS (5)
  - Tumour rupture [Unknown]
  - Intra-abdominal haemorrhage [Fatal]
  - Hepatic function abnormal [Not Recovered/Not Resolved]
  - Hepatocellular carcinoma [Fatal]
  - Hypoglycaemia [Recovered/Resolved]

NARRATIVE: CASE EVENT DATE: 20240501
